FAERS Safety Report 5431576-3 (Version None)
Quarter: 2007Q3

REPORT INFORMATION
  Report Type: 
  Country: None (occurrence: None)
  Receive Date: 20070830
  Receipt Date: 20070821
  Transmission Date: 20080115
  Serious: Yes (Other)
  Sender: FDA-Public Use
  Company Number: US-JNJFOC-20070804872

PATIENT
  Sex: Female
  Weight: 67.13 kg

DRUGS (8)
  1. TOPAMAX [Suspect]
     Indication: MIGRAINE PROPHYLAXIS
     Route: 048
  2. TOPAMAX [Suspect]
     Indication: POST-TRAUMATIC STRESS DISORDER
     Dosage: 200 MG IN MORNING AND 225 MG IN EVENING
     Route: 048
  3. TOPAMAX [Suspect]
     Indication: DEPRESSION
     Dosage: 200 MG IN MORNING AND 300 MG IN EVENING
     Route: 048
  4. ACIPHEX [Concomitant]
     Indication: GASTROOESOPHAGEAL REFLUX DISEASE
  5. ACYCLOVIR [Concomitant]
     Indication: HERPES VIRUS INFECTION
  6. ESTRADIAL [Concomitant]
     Indication: HORMONE REPLACEMENT THERAPY
  7. MUCINEX [Concomitant]
     Indication: POSTNASAL DRIP
     Route: 048
  8. IMITREX [Concomitant]
     Indication: MIGRAINE
     Route: 048

REACTIONS (4)
  - ACIDOSIS [None]
  - DYSPNOEA [None]
  - EMPHYSEMA [None]
  - ULCER [None]
